FAERS Safety Report 4395929-7 (Version None)
Quarter: 2004Q3

REPORT INFORMATION
  Report Type: 
  Country: None (occurrence: None)
  Receive Date: 20040709
  Receipt Date: 20040625
  Transmission Date: 20050211
  Serious: Yes (Other)
  Sender: FDA-Public Use
  Company Number: ZONI001455

PATIENT
  Age: 10 Year
  Sex: Female

DRUGS (1)
  1. ZONEGRAN [Suspect]
     Indication: CONVULSION
     Dosage: 200 MG DAILY ORAL
     Route: 048
     Dates: start: 20030101

REACTIONS (1)
  - HEPATITIS C [None]
